APPROVED DRUG PRODUCT: DELFLEX W/ DEXTROSE 4.25% LOW MAGNESIUM IN PLASTIC CONTAINER
Active Ingredient: CALCIUM CHLORIDE; DEXTROSE; MAGNESIUM CHLORIDE; SODIUM CHLORIDE; SODIUM LACTATE
Strength: 25.7MG/100ML;4.25GM/100ML;5.08MG/100ML;538MG/100ML;448MG/100ML
Dosage Form/Route: SOLUTION;INTRAPERITONEAL
Application: N018883 | Product #006 | TE Code: AT
Applicant: FRESENIUS MEDICAL CARE NORTH AMERICA
Approved: Nov 30, 1984 | RLD: Yes | RS: Yes | Type: RX